FAERS Safety Report 15744963 (Version 1)
Quarter: 2018Q4

REPORT INFORMATION
  Report Type: Spontaneous
  Country: US (occurrence: US)
  Receive Date: 20181220
  Receipt Date: 20181220
  Transmission Date: 20190205
  Serious: Yes (Hospitalization, Other)
  Sender: FDA-Public Use
  Company Number: US-JNJFOC-20181200400

PATIENT
  Age: 69 Year
  Sex: Male

DRUGS (14)
  1. TOPROL XL [Concomitant]
     Active Substance: METOPROLOL SUCCINATE
     Route: 048
     Dates: start: 20171229
  2. XALATAN [Concomitant]
     Active Substance: LATANOPROST
  3. IMBRUVICA [Suspect]
     Active Substance: IBRUTINIB
     Indication: CHRONIC LYMPHOCYTIC LEUKAEMIA
     Route: 048
     Dates: start: 2015, end: 201710
  4. NORVASC [Concomitant]
     Active Substance: AMLODIPINE BESYLATE
     Route: 048
  5. IMBRUVICA [Suspect]
     Active Substance: IBRUTINIB
     Indication: CHRONIC LYMPHOCYTIC LEUKAEMIA
     Route: 048
     Dates: start: 20141014, end: 201411
  6. TRAVATAN [Concomitant]
     Active Substance: TRAVOPROST
     Dosage: ONE DROP BOTH EYES
  7. PROAIR HFA [Concomitant]
     Active Substance: ALBUTEROL SULFATE
     Dosage: 2 PUFFS
     Route: 048
     Dates: start: 20160111
  8. IMBRUVICA [Suspect]
     Active Substance: IBRUTINIB
     Indication: CHRONIC LYMPHOCYTIC LEUKAEMIA
     Route: 048
     Dates: start: 20180131
  9. SIMBRINZA [Concomitant]
     Active Substance: BRIMONIDINE TARTRATE\BRINZOLAMIDE
  10. SYMBICORT [Concomitant]
     Active Substance: BUDESONIDE\FORMOTEROL FUMARATE DIHYDRATE
     Dosage: 2 PUFFS, BID
  11. ZESTRIL [Concomitant]
     Active Substance: LISINOPRIL
     Route: 048
     Dates: start: 20171229
  12. PRILOSEC [Concomitant]
     Active Substance: OMEPRAZOLE MAGNESIUM
     Route: 048
  13. LIPITOR [Concomitant]
     Active Substance: ATORVASTATIN CALCIUM
     Route: 048
     Dates: start: 20171229
  14. ALPHAGAN P [Concomitant]
     Active Substance: BRIMONIDINE TARTRATE

REACTIONS (30)
  - Lipoma [Unknown]
  - Supraventricular extrasystoles [Unknown]
  - Pneumonia [Recovering/Resolving]
  - Rash [Unknown]
  - Enterovirus infection [Unknown]
  - Chronic obstructive pulmonary disease [Recovering/Resolving]
  - Visual field tests abnormal [Unknown]
  - Gastritis [Unknown]
  - Flank pain [Recovered/Resolved]
  - Intervertebral disc protrusion [Unknown]
  - Musculoskeletal discomfort [Recovered/Resolved]
  - Normocytic anaemia [Unknown]
  - Escherichia urinary tract infection [Recovered/Resolved]
  - Sciatica [Unknown]
  - Cystitis noninfective [Recovered/Resolved]
  - Pituitary tumour benign [Unknown]
  - Atrioventricular block [Unknown]
  - Fat necrosis [Unknown]
  - Urinary tract infection [Unknown]
  - Disease progression [Unknown]
  - Cardiac failure [Unknown]
  - Hiatus hernia [Unknown]
  - Rotavirus infection [Unknown]
  - Pneumonia pseudomonal [Unknown]
  - Serratia infection [Unknown]
  - Blood immunoglobulin G decreased [Unknown]
  - Oesophagitis [Unknown]
  - Pyrexia [Recovered/Resolved]
  - Conjunctivitis [Unknown]
  - Atrial flutter [Unknown]

NARRATIVE: CASE EVENT DATE: 201411
